FAERS Safety Report 6616309-7 (Version None)
Quarter: 2010Q1

REPORT INFORMATION
  Report Type: 
  Country: None (occurrence: None)
  Receive Date: 20100305
  Receipt Date: 20100224
  Transmission Date: 20100710
  Serious: Yes (Hospitalization)
  Sender: FDA-Public Use
  Company Number: IT-ROCHE-687893

PATIENT
  Sex: Female
  Weight: 88 kg

DRUGS (12)
  1. TRASTUZUMAB [Suspect]
     Indication: BREAST CANCER
     Dosage: FORM:VIAL, DOSE LEVEL: 6 MG/KG, DATE OF LAST DOSE PRIOR TO SAE 26 JAN 2010.
     Route: 042
     Dates: start: 20090831, end: 20100222
  2. DOCETAXEL [Suspect]
     Indication: BREAST CANCER
     Dosage: FORM:VIALS, DOSE LEVEL 75 MG/ME2, DATE OF LAST DOSE PRIOR TO SAE:15 DEC 2009
     Route: 042
     Dates: start: 20090831
  3. CARBOPLATIN [Suspect]
     Indication: BREAST CANCER
     Dosage: FORM:VIALS, DOSE LEVEL 6 AUC, DATE OF LAST DOSE PRIOR TO SAE 15 DEC 2009
     Route: 042
     Dates: start: 20090831
  4. ALDACTAZIDE [Concomitant]
     Dosage: DRUG:ALDACTIAZIDE 25 MG.
     Dates: start: 20050101
  5. PREDNISONE [Concomitant]
     Dosage: DRUG:PREDNISONE 5 MG
     Dates: start: 20070101
  6. LEVOFLOXACIN [Concomitant]
     Indication: ADVERSE EVENT
     Dosage: DRUG:LEVOFLOXACINA
     Dates: start: 20091021, end: 20091026
  7. LEVOFLOXACIN [Concomitant]
     Dosage: DRUG:LEVOFLOXACINA
     Dates: start: 20091229, end: 20100104
  8. MYELOSTIM [Concomitant]
     Indication: ADVERSE EVENT
     Dates: start: 20091022, end: 20091024
  9. MYELOSTIM [Concomitant]
     Dates: start: 20091110, end: 20091112
  10. MYELOSTIM [Concomitant]
     Dates: start: 20091229, end: 20091231
  11. CIPROFLOXACIN [Concomitant]
     Indication: ADVERSE EVENT
     Dosage: DRUG:CIPROFLOXACINA
     Dates: start: 20091110, end: 20091114
  12. FLUCONAZOLE [Concomitant]
     Indication: ADVERSE EVENT
     Dates: start: 20091229, end: 20100104

REACTIONS (1)
  - CARDIOPULMONARY FAILURE [None]
